FAERS Safety Report 9434592 (Version 2)
Quarter: 2013Q3

REPORT INFORMATION
  Report Type: Spontaneous
  Country: US (occurrence: US)
  Receive Date: 20130801
  Receipt Date: 20130830
  Transmission Date: 20140515
  Serious: No
  Sender: FDA-Public Use
  Company Number: US-PFIZER INC-2013221781

PATIENT
  Age: 48 Year
  Sex: Male

DRUGS (10)
  1. XELJANZ [Suspect]
     Indication: RHEUMATOID ARTHRITIS
     Dosage: 5 MG, 2X/DAY
     Route: 048
     Dates: start: 20130604
  2. XELJANZ [Suspect]
     Dosage: UNK, ONCE DAILY
  3. XELJANZ [Suspect]
     Dosage: 5 MG, 2X/DAY
     Route: 048
     Dates: start: 201306
  4. EFEXOR XR [Concomitant]
     Dosage: UNK
  5. NEURONTIN [Concomitant]
     Dosage: UNK
  6. PLAQUENIL [Concomitant]
     Dosage: UNK
  7. VENLAFAXINE HYDROCHLORIDE [Concomitant]
     Dosage: UNK
  8. GABAPENTIN [Concomitant]
     Dosage: UNK
  9. AZATHIOPRINE [Concomitant]
     Dosage: UNK
  10. HYDROXYCHLOROQUINE [Concomitant]
     Dosage: UNK

REACTIONS (3)
  - Sleep terror [Recovered/Resolved]
  - Rhinorrhoea [Unknown]
  - Neuralgia [Unknown]
